FAERS Safety Report 15479936 (Version 5)
Quarter: 2018Q4

REPORT INFORMATION
  Report Type: Spontaneous
  Country: US (occurrence: US)
  Receive Date: 20181009
  Receipt Date: 20181127
  Transmission Date: 20190205
  Serious: Yes (Other)
  Sender: FDA-Public Use
  Company Number: US-GLAXOSMITHKLINE-US2018178316

PATIENT
  Age: 50 Year
  Sex: Female

DRUGS (1)
  1. ADVAIR DISKUS [Suspect]
     Active Substance: FLUTICASONE PROPIONATE\SALMETEROL XINAFOATE
     Indication: ASTHMA
     Dosage: 1 PUFF(S), 1D
     Route: 055

REACTIONS (11)
  - Foreign body in gastrointestinal tract [Unknown]
  - Dyspnoea [Recovered/Resolved]
  - Pharyngitis [Unknown]
  - Pyrexia [Not Recovered/Not Resolved]
  - Product complaint [Unknown]
  - Inappropriate schedule of product administration [Unknown]
  - Off label use [Unknown]
  - Pharyngeal oedema [Not Recovered/Not Resolved]
  - Foreign body aspiration [Unknown]
  - Underdose [Unknown]
  - Oropharyngeal pain [Not Recovered/Not Resolved]

NARRATIVE: CASE EVENT DATE: 201809
